FAERS Safety Report 7621926-1 (Version None)
Quarter: 2011Q3

REPORT INFORMATION
  Report Type: 
  Country: None (occurrence: None)
  Receive Date: 20110720
  Receipt Date: 20110712
  Transmission Date: 20111222
  Serious: No
  Sender: FDA-Public Use
  Company Number: US-BIOGENIDEC-2011BI026105

PATIENT
  Sex: Female

DRUGS (2)
  1. TYSABRI [Suspect]
     Indication: MULTIPLE SCLEROSIS
     Route: 042
     Dates: start: 20060802
  2. TYSABRI [Suspect]
     Route: 042
     Dates: start: 20041223, end: 20050225

REACTIONS (9)
  - COGNITIVE DISORDER [None]
  - SYNCOPE [None]
  - APHASIA [None]
  - SPEECH DISORDER [None]
  - DYSGRAPHIA [None]
  - MULTIPLE SCLEROSIS RELAPSE [None]
  - COORDINATION ABNORMAL [None]
  - DISORIENTATION [None]
  - FATIGUE [None]
